FAERS Safety Report 4607307-3 (Version None)
Quarter: 2005Q1

REPORT INFORMATION
  Report Type: 
  Country: None (occurrence: None)
  Receive Date: 20050309
  Receipt Date: 20040224
  Transmission Date: 20050727
  Serious: Yes (Death, Other)
  Sender: FDA-Public Use
  Company Number: A-US2005-08965

PATIENT
  Age: 14 Year
  Sex: Female
  Weight: 21 kg

DRUGS (3)
  1. TRACLEER [Suspect]
     Indication: PULMONARY HYPERTENSION
     Dosage: 31.25 MG, BID, ORAL
     Route: 048
     Dates: start: 20041111, end: 20041125
  2. VORICONAZOLE(VORICONAZOLE) [Suspect]
  3. ANTI-TB DRUG(ANTI-TB DRUG) [Suspect]

REACTIONS (4)
  - ALANINE AMINOTRANSFERASE INCREASED [None]
  - ASPARTATE AMINOTRANSFERASE INCREASED [None]
  - CARDIAC FAILURE [None]
  - HEPATIC ENZYME INCREASED [None]
